FAERS Safety Report 10174889 (Version 2)
Quarter: 2014Q3

REPORT INFORMATION
  Report Type: Spontaneous
  Country: US (occurrence: US)
  Receive Date: 20140515
  Receipt Date: 20140825
  Transmission Date: 20150326
  Serious: No
  Sender: FDA-Public Use
  Company Number: US-GILEAD-2014-0102305

PATIENT
  Age: 61 Year
  Sex: Female

DRUGS (3)
  1. OLYSIO [Concomitant]
     Active Substance: SIMEPREVIR
  2. SOVALDI [Suspect]
     Active Substance: SOFOSBUVIR
     Indication: HEPATITIS C
     Dosage: UNK
     Route: 065
     Dates: end: 20140512
  3. RIBAVIRIN. [Concomitant]
     Active Substance: RIBAVIRIN

REACTIONS (2)
  - Oral mucosal blistering [Unknown]
  - Stomatitis [Unknown]
